FAERS Safety Report 5572444-6 (Version None)
Quarter: 2007Q4

REPORT INFORMATION
  Report Type: 
  Country: None (occurrence: None)
  Receive Date: 20071219
  Receipt Date: 20071204
  Transmission Date: 20080405
  Serious: Yes (Other)
  Sender: FDA-Public Use
  Company Number: S07-FRA-06343-01

PATIENT
  Age: 80 Year
  Sex: Female

DRUGS (2)
  1. MEMANTINE HCL [Suspect]
     Indication: DEMENTIA ALZHEIMER'S TYPE
     Dosage: 20 MG QD; PO
     Route: 048
     Dates: start: 20060101, end: 20071101
  2. ARICEPT [Suspect]
     Indication: DEMENTIA ALZHEIMER'S TYPE
     Dates: start: 20060101, end: 20071101

REACTIONS (2)
  - TOXIC SKIN ERUPTION [None]
  - URTICARIA [None]
